FAERS Safety Report 7954341-1 (Version None)
Quarter: 2011Q4

REPORT INFORMATION
  Report Type: 
  Country: None (occurrence: None)
  Receive Date: 20111202
  Receipt Date: 20111125
  Transmission Date: 20120403
  Serious: Yes (Other)
  Sender: FDA-Public Use
  Company Number: US-BAYER-201030137NA

PATIENT
  Age: 21 Year
  Sex: Female
  Weight: 48.526 kg

DRUGS (6)
  1. TUSSIONEX [Concomitant]
     Route: 048
  2. OXYCODONE HCL AND ACETAMINOPHEN [Concomitant]
     Dosage: 325 MG, UNK
     Route: 048
  3. YAZ [Suspect]
     Dosage: UNK
     Dates: start: 20060101, end: 20090101
  4. FLUTICASONE PROPIONATE [Concomitant]
     Dosage: UNK
  5. YAZ [Suspect]
     Indication: CONTRACEPTION
     Dosage: UNK
     Dates: start: 20081027, end: 20090115
  6. HYOSCYAMINE [Concomitant]

REACTIONS (9)
  - ANXIETY [None]
  - DEPRESSION [None]
  - ABDOMINAL DISTENSION [None]
  - CHOLECYSTITIS CHRONIC [None]
  - DYSPEPSIA [None]
  - CONSTIPATION [None]
  - FLATULENCE [None]
  - CHOLECYSTECTOMY [None]
  - DIARRHOEA [None]
